FAERS Safety Report 8811243 (Version 1)
Quarter: 2012Q4

REPORT INFORMATION
  Report Type: Spontaneous
  Country: US (occurrence: None)
  Receive Date: 20120925
  Receipt Date: 20120925
  Transmission Date: 20130627
  Serious: Yes (Hospitalization)
  Sender: FDA-Public Use
  Company Number: None

PATIENT
  Age: 78 Year
  Weight: 58.51 kg

DRUGS (1)
  1. PROLIA [Suspect]
     Indication: OSTEOPOROSIS
     Dosage: Infusion every 6 months
     Route: 042

REACTIONS (8)
  - Pain [None]
  - Body temperature increased [None]
  - Vertigo [None]
  - Pneumonia [None]
  - Fluid overload [None]
  - Cardiac failure congestive [None]
  - Bone pain [None]
  - Malaise [None]
